FAERS Safety Report 4901211-9 (Version None)
Quarter: 2006Q1

REPORT INFORMATION
  Report Type: 
  Country: None (occurrence: None)
  Receive Date: 20060202
  Receipt Date: 20060123
  Transmission Date: 20060701
  Serious: Yes (Hospitalization, Other)
  Sender: FDA-Public Use
  Company Number: 2006011914

PATIENT
  Sex: Male
  Weight: 91.6266 kg

DRUGS (13)
  1. ZOLOFT [Suspect]
     Indication: HYPERTENSION
     Dosage: 100 MG (100 MG, 1 IN 1 D)
     Dates: start: 20000101
  2. ZOLOFT [Suspect]
     Indication: PANIC ATTACK
     Dosage: 100 MG (100 MG, 1 IN 1 D)
     Dates: start: 20000101
  3. ARICEPT [Suspect]
     Indication: MEMORY IMPAIRMENT
     Dosage: 10 MG (10 MG, 1 IN 1 D), ORAL
     Route: 048
     Dates: start: 20050101
  4. LASIX [Concomitant]
  5. AMBIEN [Concomitant]
  6. NEXIUM [Concomitant]
  7. POTASSIUM (POTASSIUM) [Concomitant]
  8. IRON (IRON) [Concomitant]
  9. SPIRONOLACTONE [Concomitant]
  10. THIAMINE (THIAMINE) [Concomitant]
  11. NADOLOL [Concomitant]
  12. CLONAZEPAM [Concomitant]
  13. FOLIC ACID [Concomitant]

REACTIONS (7)
  - ARTERIAL HAEMORRHAGE [None]
  - ASTHENIA [None]
  - CONDITION AGGRAVATED [None]
  - DIABETES MELLITUS [None]
  - HAEMATEMESIS [None]
  - HAEMATOCHEZIA [None]
  - MEMORY IMPAIRMENT [None]
